FAERS Safety Report 20333305 (Version 1)
Quarter: 2022Q1

REPORT INFORMATION
  Report Type: Spontaneous
  Country: US (occurrence: US)
  Receive Date: 20220113
  Receipt Date: 20220113
  Transmission Date: 20220423
  Serious: Yes (Other)
  Sender: FDA-Public Use
  Company Number: US-COOPERSURGICAL, INC.-US-2021CPS003969

PATIENT
  Age: 20 Year
  Sex: Female
  Weight: 86.621 kg

DRUGS (2)
  1. PARAGARD T 380A [Suspect]
     Active Substance: COPPER
     Indication: Contraception
     Dosage: UNK
     Route: 015
     Dates: start: 20211104, end: 20211104
  2. PARAGARD T 380A [Suspect]
     Active Substance: COPPER
     Dosage: UNK
     Route: 015
     Dates: start: 20211104

REACTIONS (3)
  - Cervix injury [Unknown]
  - Complication of device insertion [Unknown]
  - Off label use [Unknown]

NARRATIVE: CASE EVENT DATE: 20211104
